FAERS Safety Report 4332457-9 (Version None)
Quarter: 2004Q2

REPORT INFORMATION
  Report Type: 
  Country: None (occurrence: None)
  Receive Date: 20040401
  Receipt Date: 20040323
  Transmission Date: 20050107
  Serious: Yes (Other)
  Sender: FDA-Public Use
  Company Number: DEWYE659124MAR04

PATIENT

DRUGS (2)
  1. RAPAMUNE [Suspect]
     Indication: PANCREATIC CARCINOMA
  2. GEMZAR [Concomitant]

REACTIONS (1)
  - EPILEPSY [None]
